FAERS Safety Report 10268272 (Version 1)
Quarter: 2014Q2

REPORT INFORMATION
  Report Type: Spontaneous
  Country: DE (occurrence: DE)
  Receive Date: 20140630
  Receipt Date: 20140630
  Transmission Date: 20141212
  Serious: Yes (Death, Congenital Anomaly, Other)
  Sender: FDA-Public Use
  Company Number: GXKR2014DE002393

PATIENT
  Sex: 0

DRUGS (4)
  1. RAMIPRIL [Suspect]
     Indication: HYPERTENSION
     Dosage: UKN, 0.-5- GW
     Route: 064
  2. HYDROCHLOROTHIAZIDE [Suspect]
     Indication: HYPERTENSION
     Dosage: UKN, 0.-5. GW
     Route: 064
  3. VALDOXAN [Suspect]
     Indication: ANXIETY DISORDER
     Dosage: 25 [MG/D ], 0.-35.1 GW
     Route: 064
     Dates: start: 20130522, end: 20140123
  4. CELESTAN [Concomitant]
     Indication: MATERNAL THERAPY TO ENHANCE FOETAL LUNG MATURITY
     Route: 064
     Dates: start: 20140114, end: 20140114

REACTIONS (7)
  - Congenital diaphragmatic hernia [Not Recovered/Not Resolved]
  - Cerebral calcification [Not Recovered/Not Resolved]
  - Patent ductus arteriosus [Not Recovered/Not Resolved]
  - Neonatal respiratory distress syndrome [Not Recovered/Not Resolved]
  - Cryptorchism [Not Recovered/Not Resolved]
  - Laryngeal cleft [Fatal]
  - Meningomyelocele [Not Recovered/Not Resolved]
